FAERS Safety Report 5488976-5 (Version None)
Quarter: 2007Q4

REPORT INFORMATION
  Report Type: 
  Country: None (occurrence: None)
  Receive Date: 20071016
  Receipt Date: 20071009
  Transmission Date: 20080405
  Serious: Yes (Death)
  Sender: FDA-Public Use
  Company Number: JPI-P-002277

PATIENT
  Age: 49 Year
  Sex: Male

DRUGS (2)
  1. XYREM [Suspect]
     Indication: FIBROMYALGIA
     Dosage: 4.5 GM (2.25 GM, 2 IN 1 D), ORAL
     Route: 048
  2. TRAMADOL HYDROCHLORIDE AND PARACETAMOL (PARACETAMOL W/TRAMADOL) [Concomitant]

REACTIONS (2)
  - INSOMNIA [None]
  - MYALGIA [None]
